FAERS Safety Report 22243071 (Version 2)
Quarter: 2023Q2

REPORT INFORMATION
  Report Type: Report from Study
  Country: US (occurrence: US)
  Receive Date: 20230424
  Receipt Date: 20230505
  Transmission Date: 20230722
  Serious: Yes (Hospitalization)
  Sender: FDA-Public Use
  Company Number: US-002147023-NVSC2023US091115

PATIENT
  Age: 77 Year
  Sex: Female

DRUGS (1)
  1. PIQRAY [Suspect]
     Active Substance: ALPELISIB
     Indication: Breast cancer
     Dosage: 150 MG (2X), QD
     Route: 048
     Dates: start: 20230403, end: 20230412

REACTIONS (4)
  - Blood glucose increased [Recovering/Resolving]
  - Pollakiuria [Unknown]
  - Thirst [Unknown]
  - Fatigue [Unknown]

NARRATIVE: CASE EVENT DATE: 20230412
